FAERS Safety Report 5425121-6 (Version None)
Quarter: 2007Q3

REPORT INFORMATION
  Report Type: 
  Country: None (occurrence: None)
  Receive Date: 20070824
  Receipt Date: 20070820
  Transmission Date: 20080115
  Serious: Yes (Other)
  Sender: FDA-Public Use
  Company Number: DE-JNJFOC-20070605317

PATIENT
  Sex: Female

DRUGS (3)
  1. RISPERDAL [Suspect]
     Indication: SCHIZOPHRENIA, PARANOID TYPE
     Route: 048
  2. MELPERON [Concomitant]
     Indication: SLEEP DISORDER
     Route: 048
  3. CITALOPRAM [Concomitant]
     Indication: DEPRESSION
     Route: 048

REACTIONS (1)
  - LEUKOPENIA [None]
